FAERS Safety Report 8730182 (Version 2)
Quarter: 2012Q4

REPORT INFORMATION
  Report Type: Spontaneous
  Country: US (occurrence: None)
  Receive Date: 20120731
  Receipt Date: 20121005
  Transmission Date: 20130627
  Serious: Yes (Other)
  Sender: FDA-Public Use
  Company Number: AUR-APL-2012-03189

PATIENT
  Age: 39 Year
  Sex: Male
  Weight: 64 kg

DRUGS (3)
  1. LAMOTRIGINE [Suspect]
     Indication: EPILEPSY
     Dosage: 75 MG (75 MG, 1 IN 1 D)
     Dates: start: 2008
  2. LAMOTRIGINE [Suspect]
     Indication: EPILEPSY
     Dosage: 100 mg (50 mg, 2 in 1 D), Unknown
  3. LORATADINE [Concomitant]

REACTIONS (12)
  - Dermatitis allergic [None]
  - Ear discomfort [None]
  - Somnolence [None]
  - Feeling hot [None]
  - Malaise [None]
  - Rash pruritic [None]
  - Erythema [None]
  - Slow response to stimuli [None]
  - Fatigue [None]
  - Convulsion [None]
  - Food allergy [None]
  - Dysarthria [None]
